FAERS Safety Report 23026878 (Version 1)
Quarter: 2023Q4

REPORT INFORMATION
  Report Type: Spontaneous
  Country: US (occurrence: None)
  Receive Date: 20231003
  Receipt Date: 20231003
  Transmission Date: 20240110
  Serious: Yes (Disabling)
  Sender: FDA-Public Use
  Company Number: None

PATIENT
  Age: 65 Year
  Sex: Female
  Weight: 56.25 kg

DRUGS (11)
  1. GADAVIST [Suspect]
     Active Substance: GADOBUTROL
     Indication: Contrast media deposition
     Route: 042
  2. PLAQUENIL [Concomitant]
     Active Substance: HYDROXYCHLOROQUINE SULFATE
  3. OTEZLA [Concomitant]
     Active Substance: APREMILAST
  4. LIVALO [Concomitant]
     Active Substance: PITAVASTATIN CALCIUM
  5. ZETIA [Concomitant]
     Active Substance: EZETIMIBE
  6. XANAX [Concomitant]
     Active Substance: ALPRAZOLAM
  7. RESTASIS [Concomitant]
     Active Substance: CYCLOSPORINE
  8. PROLENSA [Concomitant]
     Active Substance: BROMFENAC SODIUM
  9. Tryaya [Concomitant]
  10. ZYRTEC [Concomitant]
     Active Substance: CETIRIZINE HYDROCHLORIDE
  11. Womens 50+ One A Day [Concomitant]

REACTIONS (3)
  - Contrast media reaction [None]
  - Pain [None]
  - Inflammation [None]

NARRATIVE: CASE EVENT DATE: 20230914
